FAERS Safety Report 5226817-1 (Version None)
Quarter: 2007Q1

REPORT INFORMATION
  Report Type: 
  Country: None (occurrence: None)
  Receive Date: 20070201
  Receipt Date: 20070122
  Transmission Date: 20070707
  Serious: Yes (Life-Threatening, Hospitalization, Other)
  Sender: FDA-Public Use
  Company Number: CA-ABBOTT-06P-028-0346246-00

PATIENT
  Age: 63 Year
  Sex: Male
  Weight: 124 kg

DRUGS (12)
  1. LIPIDIL [Suspect]
     Indication: DRUG USE FOR UNKNOWN INDICATION
     Route: 048
  2. METHOTREXATE [Suspect]
     Indication: DRUG USE FOR UNKNOWN INDICATION
     Route: 048
  3. DICLOFENAC SODIUM [Suspect]
     Indication: DRUG USE FOR UNKNOWN INDICATION
  4. INDOMETHACIN [Suspect]
     Indication: DRUG USE FOR UNKNOWN INDICATION
  5. ARTHROTEC [Suspect]
     Indication: DRUG USE FOR UNKNOWN INDICATION
  6. FOSINOPRIL SODIUM [Concomitant]
     Indication: DRUG USE FOR UNKNOWN INDICATION
  7. CYCLOBENZAPRINE HCL [Concomitant]
     Indication: DRUG USE FOR UNKNOWN INDICATION
  8. FUROSEMIDE [Concomitant]
     Indication: DRUG USE FOR UNKNOWN INDICATION
  9. AMITRIPTYLINE HYDROCHLORIDE [Concomitant]
     Indication: DRUG USE FOR UNKNOWN INDICATION
  10. PANTOPRAZOLE SODIUM [Concomitant]
     Indication: DRUG USE FOR UNKNOWN INDICATION
  11. HYDROMORPHONE HYDROCHLORIDE [Concomitant]
     Indication: DRUG USE FOR UNKNOWN INDICATION
  12. METFORMIN HCL [Concomitant]
     Indication: DRUG USE FOR UNKNOWN INDICATION

REACTIONS (9)
  - BLOOD CREATININE INCREASED [None]
  - COLITIS [None]
  - DRUG TOXICITY [None]
  - MUCOSAL INFLAMMATION [None]
  - NEUTROPENIA [None]
  - PANCYTOPENIA [None]
  - RENAL FAILURE ACUTE [None]
  - SHOCK [None]
  - THROMBOCYTOPENIA [None]
